FAERS Safety Report 23074222 (Version 1)
Quarter: 2023Q4

REPORT INFORMATION
  Report Type: Spontaneous
  Country: US (occurrence: US)
  Receive Date: 20231017
  Receipt Date: 20231017
  Transmission Date: 20240109
  Serious: Yes (Other)
  Sender: FDA-Public Use
  Company Number: US-MYLANLABS-2023M1108093

PATIENT
  Sex: Female

DRUGS (1)
  1. SILDENAFIL CITRATE [Suspect]
     Active Substance: SILDENAFIL CITRATE
     Indication: Product used for unknown indication
     Dosage: 60 MILLIGRAM, TID
     Route: 065

REACTIONS (8)
  - Bone cancer [Unknown]
  - Rash pruritic [Recovered/Resolved]
  - Skin swelling [Not Recovered/Not Resolved]
  - Pruritus [Unknown]
  - Dermatitis allergic [Recovering/Resolving]
  - Therapy non-responder [Unknown]
  - Product dose omission issue [Unknown]
  - Off label use [Unknown]

NARRATIVE: CASE EVENT DATE: 20230101
